FAERS Safety Report 9537004 (Version 2)
Quarter: 2013Q3

REPORT INFORMATION
  Report Type: Spontaneous
  Country: US (occurrence: US)
  Receive Date: 20130919
  Receipt Date: 20130919
  Transmission Date: 20140515
  Serious: Yes (Hospitalization, Other)
  Sender: FDA-Public Use
  Company Number: US-PFIZER INC-US-WYE-H13134710

PATIENT
  Age: 61 Year
  Sex: Male
  Weight: 63 kg

DRUGS (9)
  1. RAPAMUNE [Suspect]
     Indication: PROPHYLAXIS AGAINST TRANSPLANT REJECTION
     Dosage: UNK
     Dates: start: 200812, end: 200907
  2. PREDNISONE [Suspect]
     Indication: LIVER TRANSPLANT
     Dosage: UNK
     Dates: start: 200812, end: 200907
  3. PROGRAF [Suspect]
     Indication: PROPHYLAXIS AGAINST TRANSPLANT REJECTION
     Dosage: 1.5 MG, 1X/DAY
     Route: 048
     Dates: start: 20071211, end: 200812
  4. PROGRAF [Suspect]
     Dosage: UNK
     Route: 065
     Dates: start: 200907
  5. CELLCEPT [Suspect]
     Indication: PROPHYLAXIS AGAINST TRANSPLANT REJECTION
     Dosage: 1000 MG, 2X/DAY
     Route: 048
     Dates: start: 20071211, end: 200812
  6. CELLCEPT [Suspect]
     Indication: LIVER TRANSPLANT
     Dosage: UNK
     Dates: start: 200907, end: 20100114
  7. SINEMET [Concomitant]
     Dosage: UNK
     Dates: start: 200812
  8. SEROQUEL [Concomitant]
     Dosage: UNK
     Dates: start: 200712
  9. TRAZODONE [Concomitant]
     Dosage: UNK
     Dates: start: 200912

REACTIONS (2)
  - Pneumonia [Unknown]
  - Crush syndrome [Unknown]
